FAERS Safety Report 7889606-5 (Version None)
Quarter: 2011Q4

REPORT INFORMATION
  Report Type: 
  Country: None (occurrence: None)
  Receive Date: 20111103
  Receipt Date: 20110808
  Transmission Date: 20120403
  Serious: Yes (Other)
  Sender: FDA-Public Use
  Company Number: US-BRISTOL-MYERS SQUIBB COMPANY-15953540

PATIENT
  Age: 80 Year
  Sex: Female
  Weight: 52 kg

DRUGS (2)
  1. MULTI-VITAMIN [Concomitant]
  2. KENALOG-40 [Suspect]
     Indication: EXOSTOSIS
     Dates: start: 20100101

REACTIONS (6)
  - SWELLING FACE [None]
  - ASTHENIA [None]
  - CHEST DISCOMFORT [None]
  - ERYTHEMA [None]
  - HEADACHE [None]
  - FEELING HOT [None]
